FAERS Safety Report 9405018 (Version 2)
Quarter: 2013Q3

REPORT INFORMATION
  Report Type: Spontaneous
  Country: GB (occurrence: None)
  Receive Date: 20130715
  Receipt Date: 20130726
  Transmission Date: 20140515
  Serious: Yes (Other)
  Sender: FDA-Public Use
  Company Number: 2013GB0150

PATIENT
  Age: 15 Year
  Sex: Male

DRUGS (2)
  1. NITISINONE [Suspect]
     Indication: TYROSINAEMIA
     Dates: start: 19980718
  2. ARIPIPRAZOLE (ARIPIPRAZOLE) (ARIPIPRAZOLE) [Concomitant]

REACTIONS (2)
  - Psychotic disorder [None]
  - Anxiety [None]
